FAERS Safety Report 6764262-8 (Version None)
Quarter: 2010Q2

REPORT INFORMATION
  Report Type: 
  Country: None (occurrence: None)
  Receive Date: 20100610
  Receipt Date: 20100609
  Transmission Date: 20101027
  Serious: Yes (Death)
  Sender: FDA-Public Use
  Company Number: JP-EISAI INC.-E2020-06305-CLI-JP

PATIENT
  Sex: Female
  Weight: 40 kg

DRUGS (3)
  1. ARICEPT [Suspect]
     Route: 048
     Dates: start: 20090324, end: 20100112
  2. NORVASC [Concomitant]
     Route: 048
     Dates: start: 20070330
  3. LIPITOR [Concomitant]
     Route: 048
     Dates: start: 20070814

REACTIONS (1)
  - DEATH [None]
